FAERS Safety Report 5496006-4 (Version None)
Quarter: 2007Q4

REPORT INFORMATION
  Report Type: 
  Country: None (occurrence: None)
  Receive Date: 20071025
  Receipt Date: 20070212
  Transmission Date: 20080405
  Serious: No
  Sender: FDA-Public Use
  Company Number: A0634774A

PATIENT
  Age: 59 Year
  Sex: Female
  Weight: 111.8 kg

DRUGS (7)
  1. ADVAIR DISKUS 100/50 [Suspect]
     Indication: ASTHMA
     Dosage: 1PUFF TWICE PER DAY
     Route: 055
     Dates: start: 20061114, end: 20061223
  2. PROVENTIL [Concomitant]
     Indication: ASTHMA
     Route: 055
  3. SINGULAIR [Concomitant]
     Indication: ASTHMA
     Dosage: 10MG PER DAY
     Route: 048
  4. PAXIL [Concomitant]
     Dosage: 40MG PER DAY
     Route: 048
  5. LIPITOR [Concomitant]
     Route: 048
  6. METFORMIN [Concomitant]
     Dosage: 500MG PER DAY
     Route: 048
  7. ASPIRIN [Concomitant]
     Indication: PROPHYLAXIS
     Route: 048

REACTIONS (3)
  - APHONIA [None]
  - DYSPHONIA [None]
  - VOCAL CORD DISORDER [None]
